FAERS Safety Report 7299801-4 (Version None)
Quarter: 2011Q1

REPORT INFORMATION
  Report Type: 
  Country: None (occurrence: None)
  Receive Date: 20110217
  Receipt Date: 20110210
  Transmission Date: 20110831
  Serious: Yes (Hospitalization)
  Sender: FDA-Public Use
  Company Number: US-B.I. PHARMACEUTICALS,INC./RIDGEFIELD-2011-BP-02725BP

PATIENT
  Age: 70 Year
  Sex: Female

DRUGS (5)
  1. ZANTAC 150 [Suspect]
     Indication: GASTROOESOPHAGEAL REFLUX DISEASE
     Dosage: 150 MG
     Route: 048
     Dates: start: 20101101
  2. DIOVAN HCT [Concomitant]
     Indication: HYPERTENSION
  3. SYNTHROID [Concomitant]
     Indication: HYPOTHYROIDISM
  4. PAXIL [Concomitant]
     Indication: ANXIETY
  5. PAXIL [Concomitant]
     Indication: DEPRESSION

REACTIONS (2)
  - CAECAL LESION EXCISION [None]
  - COLONIC STENOSIS [None]
